FAERS Safety Report 12896566 (Version 1)
Quarter: 2016Q4

REPORT INFORMATION
  Report Type: Spontaneous
  Country: US (occurrence: US)
  Receive Date: 20161031
  Receipt Date: 20161031
  Transmission Date: 20170207
  Serious: No
  Sender: FDA-Public Use
  Company Number: US-AKRIMAX-TIR-2016-0865

PATIENT
  Age: 66 Year
  Sex: Female
  Weight: 65.83 kg

DRUGS (4)
  1. TIROSINT [Suspect]
     Active Substance: LEVOTHYROXINE SODIUM
     Indication: AUTOIMMUNE THYROIDITIS
     Dosage: ONCE DAILY
     Route: 048
     Dates: start: 20160610
  2. TIROSINT [Suspect]
     Active Substance: LEVOTHYROXINE SODIUM
     Dosage: TWO 25MCG CAPSULES OR FOUR 13MCG CAPSULES DAILY
     Route: 048
     Dates: start: 2016
  3. TIROSINT [Suspect]
     Active Substance: LEVOTHYROXINE SODIUM
     Indication: AUTOIMMUNE THYROIDITIS
     Dosage: ONCE DAILY
     Route: 048
     Dates: start: 20160401, end: 20160610
  4. TIROSINT [Suspect]
     Active Substance: LEVOTHYROXINE SODIUM
     Dosage: TWO 25MCG CAPSULES OR FOUR 13MCG CAPSULES DAILY
     Route: 048
     Dates: start: 2016

REACTIONS (6)
  - Drug level below therapeutic [Unknown]
  - Retinal migraine [Recovered/Resolved]
  - Visual brightness [Recovered/Resolved]
  - Blindness transient [Recovered/Resolved]
  - Therapeutic response unexpected [Recovered/Resolved]
  - Detoxification [Unknown]

NARRATIVE: CASE EVENT DATE: 2016
